FAERS Safety Report 16285920 (Version 2)
Quarter: 2019Q2

REPORT INFORMATION
  Report Type: Spontaneous
  Country: US (occurrence: US)
  Receive Date: 20190508
  Receipt Date: 20190611
  Transmission Date: 20190711
  Serious: No
  Sender: FDA-Public Use
  Company Number: US-009507513-1905USA002857

PATIENT
  Age: 66 Year
  Sex: Male

DRUGS (3)
  1. ASMANEX [Suspect]
     Active Substance: MOMETASONE FUROATE
     Dosage: 1 PUFF DAILY, ORALLY
     Route: 048
  2. ASMANEX [Suspect]
     Active Substance: MOMETASONE FUROATE
     Dosage: UNK
  3. ASMANEX [Suspect]
     Active Substance: MOMETASONE FUROATE
     Dosage: TWO DOSES
     Route: 055

REACTIONS (5)
  - Product quality issue [Unknown]
  - Incorrect dose administered [Unknown]
  - Product quality issue [Unknown]
  - No adverse event [Unknown]
  - Poor quality device used [Unknown]

NARRATIVE: CASE EVENT DATE: 20190429
